FAERS Safety Report 7064958-7 (Version None)
Quarter: 2010Q4

REPORT INFORMATION
  Report Type: 
  Country: None (occurrence: None)
  Receive Date: 20101027
  Receipt Date: 19920824
  Transmission Date: 20110411
  Serious: Yes (Death)
  Sender: FDA-Public Use
  Company Number: JP-ROCHE-930900058001

PATIENT
  Sex: Female
  Weight: 50 kg

DRUGS (7)
  1. INTERFERON ALFA-2A [Suspect]
     Indication: MULTIPLE MYELOMA
     Route: 030
     Dates: start: 19880716, end: 19880729
  2. INTERFERON ALFA-2A [Suspect]
     Route: 030
     Dates: start: 19880826, end: 19880902
  3. ENDOXAN [Suspect]
     Indication: MULTIPLE MYELOMA
     Route: 048
     Dates: start: 19880716, end: 19880719
  4. ONCOVIN [Suspect]
     Indication: MULTIPLE MYELOMA
     Route: 030
     Dates: start: 19880716
  5. ANTINEOPLASTIC [Suspect]
     Indication: MULTIPLE MYELOMA
     Route: 048
     Dates: start: 19880716, end: 19880719
  6. ANTINEOPLASTIC [Concomitant]
     Route: 048
     Dates: start: 19880716, end: 19880719
  7. INDOMETHACIN SODIUM [Concomitant]
     Route: 054
     Dates: start: 19880716, end: 19880726

REACTIONS (2)
  - DEATH [None]
  - PANCYTOPENIA [None]
